FAERS Safety Report 18919234 (Version 1)
Quarter: 2021Q1

REPORT INFORMATION
  Report Type: Spontaneous
  Country: FR (occurrence: FR)
  Receive Date: 20210219
  Receipt Date: 20210219
  Transmission Date: 20210420
  Serious: Yes (Hospitalization)
  Sender: FDA-Public Use
  Company Number: FR-ROCHE-2771706

PATIENT
  Age: 65 Year
  Sex: Male
  Weight: 78 kg

DRUGS (4)
  1. BEVACIZUMAB. [Suspect]
     Active Substance: BEVACIZUMAB
     Indication: METASTATIC BRONCHIAL CARCINOMA
     Dosage: HE RECEIVED THE MOST RECENT DOSE OF BEVACIZUMAB ON 31/DEC/2020
     Route: 042
     Dates: start: 20201218
  2. SOLU?MEDROL [Suspect]
     Active Substance: METHYLPREDNISOLONE SODIUM SUCCINATE
     Indication: PREMEDICATION
     Dosage: HE RECEIVED THE MOST RECENT DOSE OF SOLUMEDROL ON 31/DEC/2020
     Route: 042
     Dates: start: 20201218
  3. PACLITAXEL. [Suspect]
     Active Substance: PACLITAXEL
     Indication: METASTATIC BRONCHIAL CARCINOMA
     Dosage: HE RECEIVED THE MOST RECENT DOSE OF PACLITAXEL ON 31/DEC/2020
     Route: 041
     Dates: start: 20201218
  4. POLARAMINE [Suspect]
     Active Substance: DEXCHLORPHENIRAMINE MALEATE
     Indication: PREMEDICATION
     Dosage: HE RECEIVED THE MOST RECENT DOSE OF POLARAMINE ON 31/DEC/2020
     Route: 042
     Dates: start: 20201218

REACTIONS (1)
  - Hepatocellular injury [Recovering/Resolving]

NARRATIVE: CASE EVENT DATE: 20210113
